FAERS Safety Report 6660112-9 (Version None)
Quarter: 2010Q1

REPORT INFORMATION
  Report Type: 
  Country: None (occurrence: None)
  Receive Date: 20100331
  Receipt Date: 20100308
  Transmission Date: 20100710
  Serious: No
  Sender: FDA-Public Use
  Company Number: 2009BI000770

PATIENT
  Age: 38 Year
  Sex: Female

DRUGS (1)
  1. TYSABRI [Suspect]
     Indication: MULTIPLE SCLEROSIS
     Route: 042
     Dates: start: 20080815, end: 20081205

REACTIONS (5)
  - FATIGUE [None]
  - GAIT DISTURBANCE [None]
  - KERATOCONJUNCTIVITIS SICCA [None]
  - MEMORY IMPAIRMENT [None]
  - SOMNOLENCE [None]
